FAERS Safety Report 9746678 (Version 1)
Quarter: 2013Q4

REPORT INFORMATION
  Report Type: Spontaneous
  Country: DK (occurrence: DK)
  Receive Date: 20131211
  Receipt Date: 20131211
  Transmission Date: 20140711
  Serious: Yes (Hospitalization)
  Sender: FDA-Public Use
  Company Number: DK-WATSON-2013-22665

PATIENT
  Age: 57 Year
  Sex: Female

DRUGS (2)
  1. CARBOPLATIN (UNKNOWN) [Suspect]
     Indication: UTERINE CANCER
     Route: 042
     Dates: start: 20100503, end: 20100902
  2. TAXOL [Suspect]
     Indication: UTERINE CANCER
     Dosage: 318 MG, 1/ THREE WEEKS
     Route: 042
     Dates: start: 20100503, end: 20100902

REACTIONS (3)
  - Myoclonus [Not Recovered/Not Resolved]
  - Pain [Not Recovered/Not Resolved]
  - Quality of life decreased [Not Recovered/Not Resolved]
